FAERS Safety Report 7047361-5 (Version None)
Quarter: 2010Q4

REPORT INFORMATION
  Report Type: 
  Country: None (occurrence: None)
  Receive Date: 20101015
  Receipt Date: 20101013
  Transmission Date: 20110411
  Serious: Yes (Death, Other)
  Sender: FDA-Public Use
  Company Number: PHHY2010JP68704

PATIENT
  Age: 74 Year
  Sex: Male

DRUGS (1)
  1. ZOMETA [Suspect]
     Indication: LARGE INTESTINE CARCINOMA

REACTIONS (2)
  - METASTASES TO MOUTH [None]
  - OSTEONECROSIS OF JAW [None]
